FAERS Safety Report 7535760-4 (Version None)
Quarter: 2011Q2

REPORT INFORMATION
  Report Type: 
  Country: None (occurrence: None)
  Receive Date: 20110609
  Receipt Date: 20110314
  Transmission Date: 20111010
  Serious: No
  Sender: FDA-Public Use
  Company Number: US-KINGPHARMUSA00001-K201100267

PATIENT
  Sex: Male
  Weight: 104.31 kg

DRUGS (6)
  1. EMBEDA [Suspect]
     Indication: COMPLEX REGIONAL PAIN SYNDROME
     Dosage: 60 MG, TID
     Route: 048
     Dates: start: 20090101, end: 20110101
  2. LYRICA [Concomitant]
     Indication: COMPLEX REGIONAL PAIN SYNDROME
     Dosage: UNK
  3. TAPENTADOL [Concomitant]
     Indication: COMPLEX REGIONAL PAIN SYNDROME
     Dosage: UNK
  4. CYMBALTA [Concomitant]
     Indication: COMPLEX REGIONAL PAIN SYNDROME
     Dosage: UNK
  5. ZANAFLEX [Concomitant]
     Indication: COMPLEX REGIONAL PAIN SYNDROME
     Dosage: UNK
  6. XANAX [Concomitant]
     Indication: COMPLEX REGIONAL PAIN SYNDROME
     Dosage: UNK

REACTIONS (3)
  - NERVOUS SYSTEM DISORDER [None]
  - TOOTH INJURY [None]
  - TEETH BRITTLE [None]
